FAERS Safety Report 21858158 (Version 4)
Quarter: 2023Q4

REPORT INFORMATION
  Report Type: Other
  Country: FR (occurrence: FR)
  Receive Date: 20230113
  Receipt Date: 20231127
  Transmission Date: 20240109
  Serious: Yes (Life-Threatening, Other)
  Sender: FDA-Public Use
  Company Number: FR-AMGEN-FRASP2022226554

PATIENT
  Age: 62 Year
  Sex: Female

DRUGS (7)
  1. TRASTUZUMAB [Suspect]
     Active Substance: TRASTUZUMAB
     Indication: HER2 positive breast cancer
     Dosage: UNK
     Route: 065
     Dates: start: 2013, end: 201902
  2. XGEVA [Suspect]
     Active Substance: DENOSUMAB
     Indication: Metastases to bone
     Dosage: 120 MILLIGRAM
     Route: 065
     Dates: start: 2013, end: 201812
  3. EPIRUBICIN [Concomitant]
     Active Substance: EPIRUBICIN
     Indication: HER2 positive breast cancer
     Dosage: UNK
     Dates: start: 2013, end: 201902
  4. CYCLOPHOSPHAMIDE [Concomitant]
     Active Substance: CYCLOPHOSPHAMIDE
     Indication: HER2 positive breast cancer
     Dates: start: 2013, end: 201902
  5. DOCETAXEL [Concomitant]
     Active Substance: DOCETAXEL\DOCETAXEL ANHYDROUS
     Indication: HER2 positive breast cancer
     Dosage: UNK
     Dates: start: 2013, end: 201902
  6. ANASTROZOLE [Concomitant]
     Active Substance: ANASTROZOLE
     Indication: HER2 positive breast cancer
     Dates: start: 2013, end: 201902
  7. HYDROCORTISONE [Concomitant]
     Active Substance: HYDROCORTISONE

REACTIONS (9)
  - Femur fracture [Unknown]
  - Osteonecrosis of jaw [Unknown]
  - Medullary thyroid cancer [Unknown]
  - Thyroid cancer metastatic [Recovering/Resolving]
  - Cushing^s syndrome [Recovering/Resolving]
  - Gene mutation [Unknown]
  - Fatigue [Unknown]
  - Headache [Unknown]
  - Diarrhoea [Recovered/Resolved]

NARRATIVE: CASE EVENT DATE: 20181201
